FAERS Safety Report 20864038 (Version 2)
Quarter: 2022Q3

REPORT INFORMATION
  Report Type: Report from Study
  Country: US (occurrence: US)
  Receive Date: 20220523
  Receipt Date: 20220902
  Transmission Date: 20221027
  Serious: Yes (Death, Hospitalization, Other)
  Sender: FDA-Public Use
  Company Number: US-BRISTOL-MYERS SQUIBB COMPANY-2022-037980

PATIENT
  Age: 78 Year
  Sex: Male
  Weight: 97.5 kg

DRUGS (24)
  1. REVLIMID [Suspect]
     Active Substance: LENALIDOMIDE
     Indication: Myelodysplastic syndrome
     Route: 048
     Dates: start: 20220226, end: 20220328
  2. REVLIMID [Suspect]
     Active Substance: LENALIDOMIDE
     Indication: Acute myeloid leukaemia
  3. ENTRESTO [Concomitant]
     Active Substance: SACUBITRIL\VALSARTAN
     Route: 048
     Dates: start: 20210712
  4. DOXAZOSIN MESYLATE [Concomitant]
     Active Substance: DOXAZOSIN MESYLATE
  5. STOOL SOFTENER-LAXATIVE [Concomitant]
  6. PHENERGAN [Concomitant]
     Active Substance: PROMETHAZINE HYDROCHLORIDE
     Dosage: Q 4-6 HRS PRN
     Route: 048
     Dates: start: 20210914
  7. DIPHENHYDRAMINE [Concomitant]
     Active Substance: DIPHENHYDRAMINE
  8. ASPIRIN [Concomitant]
     Active Substance: ASPIRIN
  9. MULTIVITAMINS WITH MINERALS [CALCIUM PANTOTHENATE;CHOLINE;CYANOCOBALAM [Concomitant]
  10. CALCIUM CARBONATE\CHOLECALCIFEROL [Concomitant]
     Active Substance: CALCIUM CARBONATE\CHOLECALCIFEROL
  11. ROSUVASTATIN CALCIUM/ CRESTOR [Concomitant]
     Dosage: DAILY
     Route: 048
     Dates: start: 20210712
  12. VITAMIN C [Concomitant]
     Active Substance: ASCORBIC ACID
  13. VITAMIN B12 [Concomitant]
     Active Substance: CYANOCOBALAMIN
  14. GLUCOSAMINE [Concomitant]
     Active Substance: GLUCOSAMINE
     Dosage: DAILY
     Route: 048
     Dates: start: 20210712
  15. MELOXICAM/ MOBIC [Concomitant]
     Dosage: DAILY
     Route: 048
     Dates: start: 20210712
  16. OMEPRAZOLE [Concomitant]
     Active Substance: OMEPRAZOLE
     Dosage: DAILY
     Route: 048
     Dates: start: 20210712
  17. SUMATRIPTAN SUCCINATE [Concomitant]
     Active Substance: SUMATRIPTAN SUCCINATE
     Indication: Migraine
     Dosage: EVERY  2-4 HR PRN
     Dates: start: 20210712
  18. ONDANSETRON [Concomitant]
     Active Substance: ONDANSETRON
     Indication: Nausea
     Dosage: Q 8 HRS  PRN
     Route: 048
     Dates: start: 20210914
  19. METOPROLOL SUCCINATE [Concomitant]
     Active Substance: METOPROLOL SUCCINATE
     Indication: Product used for unknown indication
  20. ROSE OIL [Concomitant]
     Indication: Product used for unknown indication
  21. LIDOCAINE\PRILOCAINE [Concomitant]
     Active Substance: LIDOCAINE\PRILOCAINE
     Route: 061
     Dates: start: 20220303
  22. METOPROLOL TARTRATE [Concomitant]
     Active Substance: METOPROLOL TARTRATE
     Route: 048
     Dates: start: 20210712
  23. SENNA-S [DOCUSATE SODIUM;SENNA ALEXANDRINA] [Concomitant]
     Dosage: 8.6 MG- 50 MG?TWICE DAILY WITH A FULL GLASS OF WATER
     Dates: start: 20210712
  24. MOBIC [Concomitant]
     Active Substance: MELOXICAM
     Route: 048
     Dates: start: 20210712

REACTIONS (11)
  - Death [Fatal]
  - Renal failure [Fatal]
  - Blood pressure abnormal [Fatal]
  - Pneumonia [Fatal]
  - Thrombosis [Unknown]
  - Vomiting [Unknown]
  - Pyrexia [Unknown]
  - Haemoglobin decreased [Unknown]
  - Cough [Unknown]
  - Dizziness [Unknown]
  - Dyspnoea [Unknown]

NARRATIVE: CASE EVENT DATE: 20220325
